FAERS Safety Report 15565678 (Version 1)
Quarter: 2018Q4

REPORT INFORMATION
  Report Type: Spontaneous
  Country: US (occurrence: US)
  Receive Date: 20181030
  Receipt Date: 20181030
  Transmission Date: 20190205
  Serious: No
  Sender: FDA-Public Use
  Company Number: US-BAUSCH-BL-2018-028062

PATIENT
  Age: 7 Decade
  Sex: Male

DRUGS (2)
  1. PROZAC [Concomitant]
     Active Substance: FLUOXETINE HYDROCHLORIDE
     Indication: DEPRESSION
  2. WELLBUTRIN XL [Suspect]
     Active Substance: BUPROPION HYDROCHLORIDE
     Indication: DEPRESSION
     Dosage: 600MG-900MG
     Route: 048

REACTIONS (3)
  - Product prescribing error [Unknown]
  - Off label use [Unknown]
  - Therapy partial responder [Recovered/Resolved]
